FAERS Safety Report 4975143-4 (Version None)
Quarter: 2006Q2

REPORT INFORMATION
  Report Type: 
  Country: None (occurrence: None)
  Receive Date: 20060414
  Receipt Date: 20060414
  Transmission Date: 20061013
  Serious: Yes (Hospitalization)
  Sender: FDA-Public Use
  Company Number: None

PATIENT
  Age: 78 Year
  Sex: Male
  Weight: 68.9467 kg

DRUGS (1)
  1. FOSINOPRIL SODIUM [Suspect]
     Indication: HYPERTENSION
     Dosage: 20MG  DAILY ORAL
     Route: 048
     Dates: start: 20051216, end: 20060316

REACTIONS (2)
  - ANGIONEUROTIC OEDEMA [None]
  - SOMNOLENCE [None]
